FAERS Safety Report 22757104 (Version 4)
Quarter: 2023Q4

REPORT INFORMATION
  Report Type: Report from Study
  Country: CN (occurrence: CN)
  Receive Date: 20230727
  Receipt Date: 20231020
  Transmission Date: 20240110
  Serious: No
  Sender: FDA-Public Use
  Company Number: CN-TAKEDA-2023TUS023832

PATIENT
  Age: 63 Year
  Sex: Female
  Weight: 52.5 kg

DRUGS (8)
  1. IXAZOMIB [Suspect]
     Active Substance: IXAZOMIB
     Indication: Plasma cell myeloma
     Dosage: 4 MILLIGRAM, 1/WEEK
     Route: 048
     Dates: start: 20221218, end: 20221227
  2. ACYCLOVIR [Concomitant]
     Active Substance: ACYCLOVIR
     Indication: Antiviral prophylaxis
     Dosage: 0.2 GRAM, TID
     Route: 048
     Dates: start: 2020
  3. CEFACLOR [Concomitant]
     Active Substance: CEFACLOR
     Indication: Pneumonia
     Dosage: 0.375 GRAM, BID
     Route: 048
     Dates: start: 202212
  4. FLUCONAZOLE [Concomitant]
     Active Substance: FLUCONAZOLE
     Indication: Pneumonia
     Dosage: 50 MILLIGRAM, QD
     Route: 048
     Dates: start: 202212
  5. CALCIUM CARBONATE\CHOLECALCIFEROL [Concomitant]
     Active Substance: CALCIUM CARBONATE\CHOLECALCIFEROL
     Indication: Mineral supplementation
     Dosage: 1000 MILLIGRAM, QD
     Route: 048
     Dates: start: 2020
  6. CALCITRIOL [Concomitant]
     Active Substance: CALCITRIOL
     Indication: Prophylaxis
     Dosage: 0.25 MICROGRAM, QD
     Route: 048
     Dates: start: 2020
  7. METHYLCOBALAMIN [Concomitant]
     Active Substance: METHYLCOBALAMIN
     Indication: Prophylaxis
     Dosage: 1 MILLIGRAM, TID
     Route: 048
  8. PREBALIN [Concomitant]
     Indication: Prophylaxis
     Dosage: 150 MILLIGRAM, BID
     Route: 048

REACTIONS (2)
  - COVID-19 [Recovered/Resolved]
  - Off label use [Recovered/Resolved]

NARRATIVE: CASE EVENT DATE: 20221225
